FAERS Safety Report 7382850-5 (Version None)
Quarter: 2011Q1

REPORT INFORMATION
  Report Type: 
  Country: None (occurrence: None)
  Receive Date: 20110329
  Receipt Date: 20110329
  Transmission Date: 20110831
  Serious: No
  Sender: FDA-Public Use
  Company Number: None

PATIENT
  Age: 31 Year
  Sex: Male
  Weight: 140.6151 kg

DRUGS (1)
  1. ALCOHOL PREP PADS 70% ISOPROPYL ALCOHOL UP AND UP BY TARGET [Suspect]
     Indication: HYPOTHALAMO-PITUITARY DISORDER
     Dosage: 4 PADS BI WEEKLY
     Dates: start: 19950101, end: 20110328

REACTIONS (3)
  - INJECTION SITE INFECTION [None]
  - PRODUCT CONTAMINATION MICROBIAL [None]
  - PRODUCT QUALITY ISSUE [None]
